FAERS Safety Report 9196937 (Version 2)
Quarter: 2013Q2

REPORT INFORMATION
  Report Type: Spontaneous
  Country: US (occurrence: US)
  Receive Date: 20130328
  Receipt Date: 20130422
  Transmission Date: 20140414
  Serious: No
  Sender: FDA-Public Use
  Company Number: US-VERTEX PHARMACEUTICALS INC.-2013-004112

PATIENT
  Age: 54 Year
  Sex: Male
  Weight: 122 kg

DRUGS (3)
  1. INCIVEK [Suspect]
     Indication: HEPATITIS C
     Dosage: 750 MG, TID
     Route: 048
     Dates: start: 20130323
  2. RIBAVIRIN [Suspect]
     Indication: HEPATITIS C
     Dosage: 600 MG, BID
     Route: 048
     Dates: start: 20130323
  3. PEGASYS [Suspect]
     Indication: HEPATITIS C
     Dosage: 180 ?G/KG, QW
     Route: 058
     Dates: start: 20130323

REACTIONS (1)
  - Rash macular [Recovered/Resolved]
